FAERS Safety Report 8335626-6 (Version None)
Quarter: 2012Q2

REPORT INFORMATION
  Report Type: 
  Country: None (occurrence: None)
  Receive Date: 20120504
  Receipt Date: 20120425
  Transmission Date: 20120825
  Serious: Yes (Hospitalization)
  Sender: FDA-Public Use
  Company Number: US-BIOGENIDEC-2005BI016914

PATIENT
  Age: 57 Year
  Sex: Female

DRUGS (2)
  1. AVONEX [Suspect]
     Indication: MULTIPLE SCLEROSIS
     Route: 030
     Dates: start: 19970601
  2. ANTIDEPRESSANTS [Concomitant]
     Indication: DEPRESSION

REACTIONS (4)
  - BRONCHITIS [None]
  - DEPRESSED MOOD [None]
  - MULTIPLE SCLEROSIS RELAPSE [None]
  - MANIA [None]
